FAERS Safety Report 4322952-0 (Version None)
Quarter: 2004Q1

REPORT INFORMATION
  Report Type: 
  Country: None (occurrence: None)
  Receive Date: 20040322
  Receipt Date: 20040317
  Transmission Date: 20041129
  Serious: Yes (Other)
  Sender: FDA-Public Use
  Company Number: 2004-02-0739

PATIENT
  Age: 46 Year
  Sex: Female

DRUGS (7)
  1. PEG-INTRON [Suspect]
     Indication: HEPATITIS C
     Dosage: 120 MCG QWK SUBCUTANEOUS
     Route: 058
     Dates: start: 20020601, end: 20030501
  2. REBETOL [Suspect]
     Indication: HEPATITIS C
     Dosage: 1000 MG QD ORAL
     Route: 048
     Dates: start: 20020601, end: 20030501
  3. ENBREL [Concomitant]
  4. PREMARIN [Concomitant]
  5. PLAQUINOL TAB [Concomitant]
  6. TOPOMAX (TOPIRAMATE) [Concomitant]
  7. DOXEPIN HCL [Concomitant]

REACTIONS (1)
  - CATARACT [None]
